FAERS Safety Report 13157023 (Version 1)
Quarter: 2017Q1

REPORT INFORMATION
  Report Type: Spontaneous
  Country: TW (occurrence: TW)
  Receive Date: 20170127
  Receipt Date: 20170127
  Transmission Date: 20170428
  Serious: Yes (Hospitalization, Other)
  Sender: FDA-Public Use
  Company Number: TW-ZYDUS-013519

PATIENT
  Age: 69 Year
  Sex: Female

DRUGS (1)
  1. PAROXETINE. [Suspect]
     Active Substance: PAROXETINE
     Indication: ANTIDEPRESSANT THERAPY
     Route: 065

REACTIONS (13)
  - Discomfort [Recovering/Resolving]
  - Illusion [Unknown]
  - Psychiatric symptom [Unknown]
  - Drug withdrawal syndrome [Unknown]
  - Delusion [Unknown]
  - Dementia [Unknown]
  - Psychotic disorder [Unknown]
  - Delirium [Recovered/Resolved]
  - Influenza like illness [Unknown]
  - Major depression [Recovering/Resolving]
  - Disorientation [Recovering/Resolving]
  - Sensory disturbance [Unknown]
  - Depression [Recovering/Resolving]
